FAERS Safety Report 5513276-4 (Version None)
Quarter: 2007Q4

REPORT INFORMATION
  Report Type: 
  Country: None (occurrence: None)
  Receive Date: 20071112
  Receipt Date: 20071105
  Transmission Date: 20080405
  Serious: Yes (Other)
  Sender: FDA-Public Use
  Company Number: JP-PFIZER INC-2007093033

PATIENT
  Age: 57 Year
  Sex: Female

DRUGS (1)
  1. LIPITOR [Suspect]
     Dosage: DAILY DOSE:5MG
     Route: 048

REACTIONS (2)
  - CHOLELITHIASIS [None]
  - LIVER DISORDER [None]
